FAERS Safety Report 23745926 (Version 1)
Quarter: 2024Q2

REPORT INFORMATION
  Report Type: Spontaneous
  Country: PT (occurrence: PT)
  Receive Date: 20240416
  Receipt Date: 20240416
  Transmission Date: 20240716
  Serious: Yes (Hospitalization)
  Sender: FDA-Public Use
  Company Number: None

PATIENT
  Age: 45 Year
  Sex: Female

DRUGS (14)
  1. QUETIAPINE [Suspect]
     Active Substance: QUETIAPINE
     Indication: Bipolar I disorder
     Dosage: AT BEDTIME?DAILY DOSE: 200 MILLIGRAM
  2. OLANZAPINE [Suspect]
     Active Substance: OLANZAPINE
     Indication: Bipolar I disorder
     Dosage: DAILY DOSE: 20 MILLIGRAM
  3. VALPROIC ACID [Suspect]
     Active Substance: VALPROIC ACID
     Indication: Bipolar I disorder
     Dosage: TITRATED UP TO 2000 MG/D?DAILY DOSE: 2000 MILLIGRAM
  4. COLCHICINE [Suspect]
     Active Substance: COLCHICINE
     Indication: Behcet^s syndrome
     Dosage: DAILY DOSE: 1 MILLIGRAM
  5. LORAZEPAM [Suspect]
     Active Substance: LORAZEPAM
     Indication: Bipolar I disorder
     Dosage: TITRATED UP TO 2.5 MG THREE TIMES PER DAY
  6. LORAZEPAM [Suspect]
     Active Substance: LORAZEPAM
     Indication: Bipolar I disorder
     Dosage: DOSE OF LORAZEPAM WAS GRADUALLY DECREASED
  7. LORAZEPAM [Suspect]
     Active Substance: LORAZEPAM
     Indication: Bipolar I disorder
     Dosage: (1 MG AT BREAKFAST AND LUNCH, AND 2.5 MG AT BEDTIME)
  8. AGOMELATINE [Suspect]
     Active Substance: AGOMELATINE
     Indication: Bipolar I disorder
  9. DIAZEPAM [Suspect]
     Active Substance: DIAZEPAM
     Indication: Bipolar I disorder
     Dosage: DAILY DOSE: 15 MILLIGRAM
  10. FLURAZEPAM [Suspect]
     Active Substance: FLURAZEPAM HYDROCHLORIDE
     Indication: Bipolar I disorder
  11. TOPIRAMATE [Suspect]
     Active Substance: TOPIRAMATE
     Indication: Bipolar I disorder
  12. ARIPIPRAZOLE [Suspect]
     Active Substance: ARIPIPRAZOLE
     Indication: Bipolar I disorder
     Dosage: 10 MG AT BREAKFAST ?DAILY DOSE: 10 MILLIGRAM
  13. PREDNISOLONE [Suspect]
     Active Substance: PREDNISOLONE
     Indication: Behcet^s syndrome
     Dosage: DAILY DOSE: 40 MILLIGRAM
  14. ESCITALOPRAM [Suspect]
     Active Substance: ESCITALOPRAM OXALATE
     Indication: Bipolar I disorder

REACTIONS (9)
  - Weight increased [Recovering/Resolving]
  - Sedation complication [Recovered/Resolved]
  - Agitation [Recovered/Resolved]
  - Irritability [Recovered/Resolved]
  - Hostility [Recovered/Resolved]
  - Condition aggravated [Recovered/Resolved]
  - Hyperphagia [Unknown]
  - Anhedonia [Unknown]
  - Treatment noncompliance [Unknown]
